FAERS Safety Report 12855871 (Version 1)
Quarter: 2016Q4

REPORT INFORMATION
  Report Type: Spontaneous
  Country: ES (occurrence: None)
  Receive Date: 20161014
  Receipt Date: 20161014
  Transmission Date: 20170207
  Serious: No
  Sender: FDA-Public Use
  Company Number: ES2015K6200LIT

PATIENT
  Age: 75 Year
  Sex: Female

DRUGS (3)
  1. ALPRAZOLAM WORLD (ALPRAZOLAM) [Suspect]
     Active Substance: ALPRAZOLAM
  2. ENALAPRIL WORLD (ENALAPRIL) [Suspect]
     Active Substance: ENALAPRIL
     Indication: HYPERTENSION
  3. METFORMIN [Suspect]
     Active Substance: METFORMIN HYDROCHLORIDE
     Indication: DIABETES MELLITUS

REACTIONS (5)
  - Sedation [None]
  - Inappropriate antidiuretic hormone secretion [None]
  - Hypoxia [None]
  - Hyponatraemic encephalopathy [None]
  - Generalised tonic-clonic seizure [None]
